FAERS Safety Report 9883769 (Version 1)
Quarter: 2014Q1

REPORT INFORMATION
  Report Type: Spontaneous
  Country: US (occurrence: US)
  Receive Date: 20140210
  Receipt Date: 20140210
  Transmission Date: 20141002
  Serious: No
  Sender: FDA-Public Use
  Company Number: US-009507513-1402USA003814

PATIENT
  Sex: Male

DRUGS (10)
  1. VICTRELIS [Suspect]
     Indication: HEPATITIS C
     Dosage: 800 MG, TID
     Route: 048
     Dates: start: 201306, end: 20130711
  2. PEGASYS [Suspect]
     Indication: HEPATITIS C
     Dosage: UNK
  3. RIBAPAK [Suspect]
     Indication: HEPATITIS C
     Dosage: UNK
  4. FENOFIBRATE [Concomitant]
     Dosage: UNK
  5. LISINOPRIL [Concomitant]
     Dosage: UNK
  6. OMEGA-3 [Concomitant]
  7. CALCIUM (UNSPECIFIED) [Concomitant]
  8. VITAMIN D (UNSPECIFIED) [Concomitant]
  9. CYANOCOBALAMIN [Concomitant]
  10. VITAMINS (UNSPECIFIED) [Concomitant]

REACTIONS (1)
  - White blood cell count decreased [Unknown]
